FAERS Safety Report 25843017 (Version 1)
Quarter: 2025Q3

REPORT INFORMATION
  Report Type: Spontaneous
  Country: US (occurrence: US)
  Receive Date: 20250924
  Receipt Date: 20250924
  Transmission Date: 20251021
  Serious: No
  Sender: SANOFI AVENTIS
  Company Number: US-SANOFI-02655583

PATIENT
  Age: 54 Year
  Sex: Female

DRUGS (10)
  1. DUPIXENT [Suspect]
     Active Substance: DUPILUMAB
     Indication: Asthma
     Dosage: 300 MG, QOW
     Route: 058
     Dates: start: 20250815
  2. DUPIXENT [Suspect]
     Active Substance: DUPILUMAB
     Indication: Steroid therapy
  3. PREDNISONE [Concomitant]
     Active Substance: PREDNISONE
  4. MONTELUKAST [Concomitant]
     Active Substance: MONTELUKAST
  5. SPIRIVA [Concomitant]
     Active Substance: TIOTROPIUM BROMIDE MONOHYDRATE
  6. HYDROCHLOROTHIAZIDE [Concomitant]
     Active Substance: HYDROCHLOROTHIAZIDE
  7. METHIMAZOLE [Concomitant]
     Active Substance: METHIMAZOLE
  8. METFORMIN HYDROCHLORIDE [Concomitant]
     Active Substance: METFORMIN HYDROCHLORIDE
  9. ASMANEX [Concomitant]
     Active Substance: MOMETASONE FUROATE
  10. FAMOTIDINE [Concomitant]
     Active Substance: FAMOTIDINE

REACTIONS (14)
  - Pain of skin [Not Recovered/Not Resolved]
  - Pruritus [Not Recovered/Not Resolved]
  - Swelling face [Not Recovered/Not Resolved]
  - Eye swelling [Not Recovered/Not Resolved]
  - Eye pain [Not Recovered/Not Resolved]
  - Herpes zoster [Not Recovered/Not Resolved]
  - Eye pruritus [Unknown]
  - Rhinorrhoea [Unknown]
  - Pain [Not Recovered/Not Resolved]
  - Sinusitis [Not Recovered/Not Resolved]
  - Depression [Not Recovered/Not Resolved]
  - Blister [Not Recovered/Not Resolved]
  - Product dose omission in error [Unknown]
  - Product use in unapproved indication [Unknown]

NARRATIVE: CASE EVENT DATE: 20250101
